FAERS Safety Report 24172656 (Version 1)
Quarter: 2024Q3

REPORT INFORMATION
  Report Type: Spontaneous
  Country: CN (occurrence: None)
  Receive Date: 20240805
  Receipt Date: 20240805
  Transmission Date: 20241017
  Serious: Yes (Hospitalization)
  Sender: ORION
  Company Number: CN-Orion Corporation ORION PHARMA-ENT 2024-0035

PATIENT
  Age: 77 Year
  Sex: Male
  Weight: 65 kg

DRUGS (5)
  1. ENTACAPONE [Suspect]
     Active Substance: ENTACAPONE
     Indication: Parkinson^s disease
     Dosage: 0.05G ORALLY BEFORE BREAKFAST AND DINNER AND 0.1G ORALLY BEFORE LUNCH
     Dates: start: 20120101, end: 20220701
  2. AMANTADINE HYDROCHLORIDE [Suspect]
     Active Substance: AMANTADINE HYDROCHLORIDE
     Indication: Parkinson^s disease
     Dosage: 0.05G BEFORE BREAKFAST AND 0.05G BEFORE LUNCH
     Dates: start: 20120101, end: 20220630
  3. BENSERAZIDE HYDROCHLORIDE\LEVODOPA [Suspect]
     Active Substance: BENSERAZIDE HYDROCHLORIDE\LEVODOPA
     Indication: Parkinson^s disease
     Dosage: BEFORE MEALS
     Dates: start: 20120101, end: 20220704
  4. TRIHEXYPHENIDYL HYDROCHLORIDE [Suspect]
     Active Substance: TRIHEXYPHENIDYL HYDROCHLORIDE
     Indication: Parkinson^s disease
     Dosage: AFTER MEALS
     Dates: start: 20120101, end: 20220630
  5. PRAMIPEXOLE DIHYDROCHLORIDE [Suspect]
     Active Substance: PRAMIPEXOLE DIHYDROCHLORIDE
     Indication: Parkinson^s disease
     Dosage: AFTER MEALS
     Dates: start: 20120101, end: 20220708

REACTIONS (4)
  - Loss of consciousness [Recovering/Resolving]
  - Unresponsive to stimuli [Recovering/Resolving]
  - Tremor [Recovering/Resolving]
  - Urinary incontinence [Recovering/Resolving]

NARRATIVE: CASE EVENT DATE: 20220624
